FAERS Safety Report 9270452 (Version 7)
Quarter: 2014Q2

REPORT INFORMATION
  Report Type: Spontaneous
  Country: DE (occurrence: DE)
  Receive Date: 20130503
  Receipt Date: 20140409
  Transmission Date: 20141212
  Serious: Yes (Hospitalization)
  Sender: FDA-Public Use
  Company Number: DE-VERTEX PHARMACEUTICALS INC-2013-005707

PATIENT
  Age: 54 Year
  Sex: Female

DRUGS (28)
  1. INCIVO [Suspect]
     Indication: HEPATITIS C
     Dosage: 2250 MG, QD
     Route: 048
     Dates: start: 20121121, end: 20130213
  2. RIBAVIRIN [Suspect]
     Indication: HEPATITIS C
     Dosage: 600 MG, QD
     Route: 048
     Dates: start: 20121121
  3. PEGASYS [Suspect]
     Indication: HEPATITIS C
     Dosage: 180 ?G, QW
     Route: 058
     Dates: start: 20121121
  4. PHENPROCOUMON [Suspect]
     Indication: PRODUCT USED FOR UNKNOWN INDICATION
     Dosage: UNK, QD
     Route: 048
     Dates: start: 20130429, end: 20130508
  5. ARANESP [Concomitant]
     Dosage: 60 G, QW
     Route: 065
  6. HYDROCHLOROTHIAZIDE [Concomitant]
     Dosage: 25 MG, QD
     Route: 048
  7. MINOXIDIL [Concomitant]
     Dosage: UNK, QD 4 TIMES A DAY
     Route: 048
  8. CETIRIZINE HYDROCHLORIDE [Concomitant]
     Dosage: 10 MG, UNK
     Route: 065
  9. CANDESARTAN [Concomitant]
     Dosage: 16 UNK, UNK
     Route: 048
  10. BISOPROLOL [Concomitant]
     Dosage: 5 UNK, UNK
     Route: 065
  11. AMLODIPINE [Concomitant]
     Dosage: 5 MG, BID
     Route: 065
  12. RAMIPRIL [Concomitant]
     Dosage: 5 MG, BID
     Route: 065
  13. MOXONIDINE [Concomitant]
     Dosage: 0.4 MG, BID
     Route: 065
  14. CLONIDINE [Concomitant]
     Dosage: 150 G, QD
     Route: 048
  15. CALCIUM CARBONATE [Concomitant]
     Dosage: UNK, TID
  16. TORASEMID [Concomitant]
     Dosage: 200 MG, QD
     Route: 048
  17. NATRIUM BICARBONATE [Concomitant]
     Dosage: 1 G, UNK
     Route: 065
  18. LEVOTHYROXINE SODIUM [Concomitant]
     Dosage: 200 UNK, UNK
  19. OMEPRAZOLE [Concomitant]
     Dosage: 10 MG, UNK
     Route: 065
  20. ROCALTROL [Concomitant]
     Dosage: 0.5 UNK, QD
  21. SPIRIVA [Concomitant]
     Dosage: 18 G, QD
     Route: 065
  22. SALBUTAMOL [Concomitant]
     Dosage: UNK
     Route: 065
  23. BICANORM [Concomitant]
     Dosage: 2 UNK, UNK
  24. PANTOPRAZOLE [Concomitant]
     Dosage: 40 MG, QD
     Route: 065
  25. RENAGEL [Concomitant]
     Dosage: 2400 MG, TID
  26. EBRANTIL [Concomitant]
     Dosage: 60 MG, BID
     Route: 065
  27. MARCUMAR [Concomitant]
     Dosage: UNK
     Route: 065
  28. NITROLINGUAL [Concomitant]
     Dosage: SPRAY, PRN
     Route: 065

REACTIONS (4)
  - Hypertensive crisis [Recovered/Resolved]
  - Compartment syndrome [Recovered/Resolved]
  - Haematoma [Not Recovered/Not Resolved]
  - Atrial flutter [Not Recovered/Not Resolved]
